FAERS Safety Report 14830018 (Version 1)
Quarter: 2018Q2

REPORT INFORMATION
  Report Type: Spontaneous
  Country: GB (occurrence: GB)
  Receive Date: 20180430
  Receipt Date: 20180430
  Transmission Date: 20180711
  Serious: Yes (Hospitalization, Other)
  Sender: FDA-Public Use
  Company Number: GB-EDENBRIDGE PHARMACEUTICALS, LLC-GB-2018EDE000080

PATIENT
  Age: 43 Year
  Sex: Female

DRUGS (3)
  1. PREDNISOLONE SODIUM PHOSPHATE. [Suspect]
     Active Substance: PREDNISOLONE SODIUM PHOSPHATE
     Indication: IRIDOCYCLITIS
     Dosage: 10 MG, QD
  2. PREDNISOLONE SODIUM PHOSPHATE. [Suspect]
     Active Substance: PREDNISOLONE SODIUM PHOSPHATE
     Dosage: 5 MG, QD
  3. METHOTREXATE. [Suspect]
     Active Substance: METHOTREXATE
     Indication: IRIDOCYCLITIS
     Dosage: 12.5 MG, WEEKLY

REACTIONS (1)
  - Sepsis [Recovered/Resolved]
